FAERS Safety Report 14649127 (Version 1)
Quarter: 2018Q1

REPORT INFORMATION
  Report Type: Spontaneous
  Country: US (occurrence: US)
  Receive Date: 20180316
  Receipt Date: 20180316
  Transmission Date: 20180509
  Serious: Yes (Hospitalization, Other)
  Sender: FDA-Public Use
  Company Number: US-ZYDUS-019229

PATIENT
  Age: 39 Year
  Sex: Female

DRUGS (4)
  1. DIPHENHYDRAMINE. [Suspect]
     Active Substance: DIPHENHYDRAMINE
     Indication: BACK PAIN
     Route: 065
  2. OXYCODONE [Suspect]
     Active Substance: OXYCODONE
     Indication: BACK PAIN
     Route: 065
  3. ALPRAZOLAM. [Interacting]
     Active Substance: ALPRAZOLAM
     Indication: BACK PAIN
     Route: 065
  4. LORAZEPAM. [Interacting]
     Active Substance: LORAZEPAM
     Indication: BACK PAIN
     Route: 065

REACTIONS (13)
  - Peripheral swelling [Recovered/Resolved]
  - Symptom masked [Unknown]
  - Somnolence [Recovered/Resolved]
  - Tenderness [Recovered/Resolved]
  - Blood creatine increased [Recovered/Resolved]
  - Lethargy [Recovered/Resolved]
  - Compartment syndrome [Recovered/Resolved]
  - Overdose [Unknown]
  - Pain in extremity [Recovered/Resolved]
  - Drug interaction [Unknown]
  - Loss of consciousness [Recovered/Resolved]
  - White blood cell count increased [Recovered/Resolved]
  - Erythema [Recovered/Resolved]
